FAERS Safety Report 6906800-8 (Version None)
Quarter: 2010Q3

REPORT INFORMATION
  Report Type: 
  Country: None (occurrence: None)
  Receive Date: 20100804
  Receipt Date: 20100615
  Transmission Date: 20110219
  Serious: Yes (Hospitalization)
  Sender: FDA-Public Use
  Company Number: PHHO2010FR09167

PATIENT
  Sex: Male
  Weight: 71 kg

DRUGS (10)
  1. MYCOPHENOLIC ACID [Suspect]
     Indication: RENAL TRANSPLANT
     Dosage: 720 MG ONCE A DAY
     Route: 048
     Dates: start: 20100602, end: 20100612
  2. NEORAL [Suspect]
     Indication: RENAL TRANSPLANT
     Dosage: 250 MG, UNK
     Route: 048
     Dates: start: 20100316
  3. LEVOTHYROXINE SODIUM [Concomitant]
     Indication: HYPOTHYROIDISM
     Dosage: UNK
  4. ROVALCYTE [Concomitant]
     Indication: CYTOMEGALOVIRUS INFECTION
     Dosage: UNK
  5. LITHIUM CARBONATE [Concomitant]
     Indication: BIPOLAR I DISORDER
     Dosage: UNK
  6. TERCIAN [Concomitant]
     Indication: BIPOLAR I DISORDER
     Dosage: UNK
  7. UVEDOSE [Concomitant]
     Indication: VITAMIN D DEFICIENCY
     Dosage: UNK
  8. AMLOR [Concomitant]
     Indication: HYPERTENSION
     Dosage: UNK
  9. PROZAC [Concomitant]
     Indication: BIPOLAR I DISORDER
     Dosage: UNK
  10. SOLUPRED [Concomitant]
     Indication: RENAL TRANSPLANT
     Dosage: UNK

REACTIONS (6)
  - AGRANULOCYTOSIS [None]
  - ASTHENIA [None]
  - CHILLS [None]
  - MUSCULAR WEAKNESS [None]
  - NEUTROPENIA [None]
  - PYREXIA [None]
